FAERS Safety Report 26024617 (Version 1)
Quarter: 2025Q4

REPORT INFORMATION
  Report Type: Spontaneous
  Country: US (occurrence: US)
  Receive Date: 20251111
  Receipt Date: 20251111
  Transmission Date: 20260118
  Serious: No
  Sender: ROCHE
  Company Number: US-ROCHE-10000429468

PATIENT
  Sex: Male

DRUGS (2)
  1. ERIVEDGE [Suspect]
     Active Substance: VISMODEGIB
     Indication: Skin cancer
     Dosage: STRENGTH: 150 MG
     Route: 048
     Dates: start: 202508
  2. ERIVEDGE [Suspect]
     Active Substance: VISMODEGIB
     Indication: Lip neoplasm malignant stage unspecified

REACTIONS (3)
  - Muscle spasms [Unknown]
  - Alopecia [Unknown]
  - Ageusia [Unknown]
